FAERS Safety Report 7497519-6 (Version None)
Quarter: 2011Q2

REPORT INFORMATION
  Report Type: 
  Country: None (occurrence: None)
  Receive Date: 20110523
  Receipt Date: 20110504
  Transmission Date: 20111010
  Serious: No
  Sender: FDA-Public Use
  Company Number: US-B.I. PHARMACEUTICALS,INC./RIDGEFIELD-2011-BP-08954BP

PATIENT
  Age: 89 Year
  Sex: Male
  Weight: 101.15 kg

DRUGS (10)
  1. DILTIAZEM CD [Concomitant]
     Indication: HYPERTENSION
     Route: 048
     Dates: start: 20101129
  2. TRAVOPROST [Concomitant]
     Indication: GLAUCOMA
     Dates: start: 20101129
  3. MULTIVITAMIN WITH MINERAL [Concomitant]
     Indication: HYPOVITAMINOSIS
     Route: 048
     Dates: start: 20101129
  4. ALBUTEROL SULFATE AUTOHALER [Concomitant]
     Indication: DYSPNOEA
  5. LEVOTHYROXINE SODIUM [Concomitant]
     Indication: HYPOTHYROIDISM
     Route: 048
     Dates: start: 20101129
  6. PRADAXA [Suspect]
     Indication: ATRIAL FIBRILLATION
     Dosage: 300 MG
     Route: 048
     Dates: start: 20110212, end: 20110328
  7. BRIMONIDINE TARTRATE [Concomitant]
     Indication: GLAUCOMA
     Dates: start: 20101130
  8. ALBUTEROL SULFATE AUTOHALER [Concomitant]
     Indication: WHEEZING
  9. FERROUS SULFATE TAB [Concomitant]
     Indication: ANAEMIA
     Route: 048
     Dates: start: 20110406
  10. ALBUTEROL SULFATE AUTOHALER [Concomitant]
     Indication: PULMONARY CONGESTION
     Dates: start: 20101129

REACTIONS (3)
  - HAEMOGLOBIN DECREASED [None]
  - RECTAL HAEMORRHAGE [None]
  - HAEMATOCRIT DECREASED [None]
